FAERS Safety Report 19325534 (Version 1)
Quarter: 2021Q2

REPORT INFORMATION
  Report Type: Report from Study
  Country: US (occurrence: US)
  Receive Date: 20210528
  Receipt Date: 20210528
  Transmission Date: 20210717
  Serious: Yes (Other)
  Sender: FDA-Public Use
  Company Number: US-MYLANLABS-2021M1031238

PATIENT
  Age: 4 Month
  Sex: Female

DRUGS (7)
  1. IMMUNOGLOBULIN                     /07494701/ [Concomitant]
     Active Substance: IMMUNE GLOBULIN NOS
     Indication: IMMUNOMODULATORY THERAPY
     Dosage: 500 MILLIGRAM/KILOGRAM, MONTHLY
     Route: 042
  2. METHOTREXATE. [Suspect]
     Active Substance: METHOTREXATE
     Indication: IMMUNE TOLERANCE INDUCTION
  3. METHOTREXATE. [Suspect]
     Active Substance: METHOTREXATE
     Indication: GLYCOGEN STORAGE DISEASE TYPE II
  4. RITUXIMAB. [Suspect]
     Active Substance: RITUXIMAB
     Indication: GLYCOGEN STORAGE DISEASE TYPE II
  5. METHOTREXATE. [Suspect]
     Active Substance: METHOTREXATE
     Indication: PROPHYLAXIS
     Dosage: 0.4 MILLIGRAM/KILOGRAM, CYCLE 3 CYCLES OF LOW?DOSE METHOTREXATE; THREE DOSES PER CYCLE
     Route: 065
  6. RITUXIMAB. [Suspect]
     Active Substance: RITUXIMAB
     Indication: PROPHYLAXIS
     Dosage: 375 MILLIGRAM/SQ. METER, QW 4 DOSES
     Route: 042
  7. RITUXIMAB. [Suspect]
     Active Substance: RITUXIMAB
     Indication: IMMUNE TOLERANCE INDUCTION

REACTIONS (3)
  - Ear infection [Unknown]
  - Escherichia urinary tract infection [Unknown]
  - Rhinorrhoea [Unknown]
